FAERS Safety Report 7414287-4 (Version None)
Quarter: 2011Q2

REPORT INFORMATION
  Report Type: 
  Country: None (occurrence: None)
  Receive Date: 20110414
  Receipt Date: 20110407
  Transmission Date: 20111010
  Serious: Yes (Hospitalization, Other)
  Sender: FDA-Public Use
  Company Number: JP-PFIZER INC-2011072981

PATIENT
  Age: 51 Year
  Sex: Female
  Weight: 40 kg

DRUGS (20)
  1. CELECOX [Suspect]
     Indication: STILL'S DISEASE ADULT ONSET
     Dosage: 200 MG, 2X/DAY
     Route: 048
     Dates: start: 20100130
  2. PREDNISOLONE [Concomitant]
     Dosage: 80 MG, UNK/D
     Route: 048
  3. PROGRAF [Suspect]
     Indication: STILL'S DISEASE ADULT ONSET
     Dosage: 3 MG, 1X/DAY
     Route: 048
     Dates: start: 20100127, end: 20100709
  4. PROGRAF [Suspect]
     Dosage: 3 MG, 1X/DAY
     Route: 048
     Dates: start: 20100914, end: 20101029
  5. PREDNISOLONE [Concomitant]
     Dosage: 1 MG, 1X/DAY
     Route: 048
     Dates: start: 20100615
  6. TAKEPRON [Concomitant]
     Dosage: 15 MG, 1X/DAY
     Route: 048
     Dates: start: 20100130
  7. PREDNISOLONE [Concomitant]
     Dosage: 30 MG, UNK/D
     Route: 048
     Dates: start: 20100127
  8. PREDONINE [Concomitant]
     Indication: STILL'S DISEASE ADULT ONSET
     Dosage: 10 MG, UNK/D
     Route: 048
     Dates: start: 20100615
  9. PREDNISOLONE [Concomitant]
     Dosage: 7.5 MG, UNK/D
     Route: 048
  10. METHOTREXATE SODIUM [Concomitant]
     Dosage: 2.5 MG, 2X/DAY
     Route: 048
     Dates: start: 20100615
  11. PREDNISOLONE [Concomitant]
     Dosage: 40 MG, UNK/D
     Route: 048
     Dates: start: 20100113
  12. PROGRAF [Suspect]
     Dosage: 2 MG, 1X/DAY
     Route: 048
     Dates: start: 20100113, end: 20100126
  13. ACTONEL [Concomitant]
     Dosage: 17.5 MG, WEEKLY
     Route: 048
     Dates: start: 20100130
  14. ROHYPNOL [Concomitant]
     Indication: INSOMNIA
     Dosage: 2 MG, AS NEEDED
     Route: 048
     Dates: start: 20100130
  15. FOLIC ACID [Concomitant]
     Dosage: 5 MG, WEEKLY
     Route: 048
     Dates: start: 20100615
  16. PREDNISOLONE [Concomitant]
     Dosage: 20 MG, UNK/D
     Route: 048
  17. METHOTREXATE SODIUM [Concomitant]
     Indication: STILL'S DISEASE ADULT ONSET
     Dosage: 12.5 MG, WEEKLY
     Route: 048
  18. VALSARTAN [Concomitant]
     Indication: HYPERTENSION
     Dosage: 40 MG, 1X/DAY
     Route: 048
     Dates: start: 20100615
  19. PROGRAF [Suspect]
     Dosage: 3 MG, 1X/DAY
     Route: 048
     Dates: start: 20100724, end: 20100826
  20. PREDNISOLONE [Concomitant]
     Indication: STILL'S DISEASE ADULT ONSET
     Dosage: 30 MG, UNK/D
     Route: 048

REACTIONS (2)
  - COLITIS ISCHAEMIC [None]
  - OFF LABEL USE [None]
